FAERS Safety Report 8336348-8 (Version None)
Quarter: 2012Q2

REPORT INFORMATION
  Report Type: 
  Country: None (occurrence: None)
  Receive Date: 20120504
  Receipt Date: 20120424
  Transmission Date: 20120825
  Serious: Yes (Hospitalization, Other)
  Sender: FDA-Public Use
  Company Number: PHHY2012BR036380

PATIENT
  Sex: Female
  Weight: 92 kg

DRUGS (3)
  1. MODURETIC 5-50 [Concomitant]
     Indication: HYPERTENSION
     Dosage: 1 DF, A DAY
     Route: 048
  2. OMEPRAZOLE [Concomitant]
     Indication: GASTRITIS
     Dosage: 1 DF, DAILY
     Route: 048
  3. FORMOTEROL FUMARATE [Suspect]
     Indication: DYSPNOEA
     Dosage: 1 DF, UNK

REACTIONS (4)
  - UTERINE LEIOMYOMA [None]
  - LEIOMYOSARCOMA [None]
  - HYPERTENSION [None]
  - MIGRAINE [None]
